FAERS Safety Report 5647906-3 (Version None)
Quarter: 2008Q1

REPORT INFORMATION
  Report Type: 
  Country: None (occurrence: None)
  Receive Date: 20080303
  Receipt Date: 20080220
  Transmission Date: 20080703
  Serious: Yes (Hospitalization, Other)
  Sender: FDA-Public Use
  Company Number: US-PFIZER INC-2008018034

PATIENT

DRUGS (1)
  1. CHANTIX [Suspect]

REACTIONS (1)
  - HEPATITIS [None]
